FAERS Safety Report 7511920-3 (Version None)
Quarter: 2011Q2

REPORT INFORMATION
  Report Type: 
  Country: None (occurrence: None)
  Receive Date: 20110531
  Receipt Date: 20110524
  Transmission Date: 20111010
  Serious: Yes (Hospitalization)
  Sender: FDA-Public Use
  Company Number: CH-SANOFI-AVENTIS-2011SA032579

PATIENT
  Age: 81 Year
  Sex: Male

DRUGS (9)
  1. ENOXAPARIN SODIUM [Suspect]
     Dates: end: 20110316
  2. ASPIRIN [Concomitant]
     Route: 048
  3. COZAAR [Concomitant]
     Route: 048
  4. NITROGLYCERIN [Concomitant]
  5. ZOLPIDEM [Concomitant]
     Route: 048
  6. OLFEN [Concomitant]
     Route: 048
  7. ROCEPHIN [Suspect]
     Dates: start: 20110314, end: 20110316
  8. CIPROFLOXACIN [Concomitant]
  9. COTENOLOL [Concomitant]
     Route: 048

REACTIONS (1)
  - CHOLESTATIC LIVER INJURY [None]
